FAERS Safety Report 13799855 (Version 1)
Quarter: 2017Q3

REPORT INFORMATION
  Report Type: Spontaneous
  Country: US (occurrence: US)
  Receive Date: 20170727
  Receipt Date: 20170727
  Transmission Date: 20171127
  Serious: Yes (Other)
  Sender: FDA-Public Use
  Company Number: None

PATIENT
  Age: 39 Year
  Sex: Female
  Weight: 85.5 kg

DRUGS (1)
  1. CONTRAVE [Suspect]
     Active Substance: BUPROPION HYDROCHLORIDE\NALTREXONE HYDROCHLORIDE
     Indication: WEIGHT DECREASED
     Dosage: ?          QUANTITY:1 TABLET(S);?
     Route: 048
     Dates: start: 20170727, end: 20170727

REACTIONS (7)
  - Somnolence [None]
  - Palpitations [None]
  - Fatigue [None]
  - Tremor [None]
  - Dysarthria [None]
  - Respiratory rate decreased [None]
  - Headache [None]

NARRATIVE: CASE EVENT DATE: 20170727
